FAERS Safety Report 9825725 (Version 1)
Quarter: 2014Q1

REPORT INFORMATION
  Report Type: Spontaneous
  Country: US (occurrence: None)
  Receive Date: 20140115
  Receipt Date: 20140115
  Transmission Date: 20141002
  Serious: Yes (Other)
  Sender: FDA-Public Use
  Company Number: None

PATIENT
  Age: 78 Year
  Sex: Female

DRUGS (3)
  1. AMLODIPINE BESYLATE 10 MG TABLET [Suspect]
     Indication: BLOOD PRESSURE
     Dosage: 10 MG  30 DAYS SUPPLY 1 A DAY
     Route: 048
     Dates: start: 20131031, end: 20131117
  2. LISINOPRIL [Concomitant]
  3. PREMARIN [Concomitant]

REACTIONS (5)
  - Malaise [None]
  - Vomiting [None]
  - Diarrhoea [None]
  - Apparent death [None]
  - Hypertension [None]
